FAERS Safety Report 7138788-1 (Version None)
Quarter: 2010Q4

REPORT INFORMATION
  Report Type: 
  Country: None (occurrence: None)
  Receive Date: 20101202
  Receipt Date: 20101202
  Transmission Date: 20110411
  Serious: No
  Sender: FDA-Public Use
  Company Number: None

PATIENT
  Age: 51 Year
  Sex: Male

DRUGS (3)
  1. REVLIMID [Suspect]
     Indication: MULTIPLE MYELOMA
     Dosage: 10MG DAILY 21D/28D ORALLY
     Route: 048
  2. ZOVIRAX [Concomitant]
  3. PROAIR HFA [Concomitant]

REACTIONS (2)
  - HEADACHE [None]
  - NEUTROPENIA [None]
